FAERS Safety Report 9089626 (Version 1)
Quarter: 2013Q1

REPORT INFORMATION
  Report Type: Report from Study
  Country: US (occurrence: US)
  Receive Date: 20130130
  Receipt Date: 20130130
  Transmission Date: 20140127
  Serious: No
  Sender: FDA-Public Use
  Company Number: US-ABBOTT-12P-163-0955363-00

PATIENT
  Age: 57 Year
  Sex: Female

DRUGS (7)
  1. HUMIRA 40 MG/0.8 ML PEN [Suspect]
     Indication: CROHN^S DISEASE
     Dates: start: 2009
  2. ACTONEL [Concomitant]
     Indication: OSTEOPOROSIS
     Dosage: MONTHLY
  3. VITAMIN B12 [Concomitant]
     Indication: PRODUCT USED FOR UNKNOWN INDICATION
     Dosage: MONTHLY
  4. PROBIOTICS [Concomitant]
     Indication: PRODUCT USED FOR UNKNOWN INDICATION
  5. VITAMIN D3 [Concomitant]
     Indication: PRODUCT USED FOR UNKNOWN INDICATION
     Dosage: 5,000 UNITS 4 TABLETS DAILY
  6. MULTIVITAMIN [Concomitant]
     Indication: PRODUCT USED FOR UNKNOWN INDICATION
     Dosage: DAILY
  7. MELOXICAM [Concomitant]
     Indication: BONE DISORDER
     Dosage: 7.5MG DAILY

REACTIONS (6)
  - Lacrimation increased [Not Recovered/Not Resolved]
  - Eye infection [Recovered/Resolved]
  - Diarrhoea [Not Recovered/Not Resolved]
  - Abdominal pain [Not Recovered/Not Resolved]
  - Rash papular [Not Recovered/Not Resolved]
  - Rash papular [Recovering/Resolving]
